FAERS Safety Report 24065154 (Version 1)
Quarter: 2024Q3

REPORT INFORMATION
  Report Type: Spontaneous
  Country: US (occurrence: None)
  Receive Date: 20240708
  Receipt Date: 20240708
  Transmission Date: 20241017
  Serious: Yes (Other)
  Sender: Public
  Company Number: None

PATIENT
  Age: 40 Year
  Sex: Female
  Weight: 69.3 kg

DRUGS (1)
  1. OFLOXACIN [Suspect]
     Active Substance: OFLOXACIN
     Indication: Ear infection
     Dosage: FREQUENCY : EVERY 12 HOURS;?
     Route: 001
     Dates: start: 20240702, end: 20240707

REACTIONS (6)
  - Lacrimation increased [None]
  - Eye pruritus [None]
  - Eye swelling [None]
  - Dyspnoea [None]
  - Throat tightness [None]
  - Therapy non-responder [None]

NARRATIVE: CASE EVENT DATE: 20240706
